FAERS Safety Report 6592845-7 (Version None)
Quarter: 2010Q1

REPORT INFORMATION
  Report Type: 
  Country: None (occurrence: None)
  Receive Date: 20100212
  Receipt Date: 20100126
  Transmission Date: 20100710
  Serious: Yes (Death)
  Sender: FDA-Public Use
  Company Number: 220001J10ITA

PATIENT
  Sex: Male

DRUGS (1)
  1. SAIZEN [Suspect]

REACTIONS (1)
  - DEATH [None]
